FAERS Safety Report 7027821-3 (Version None)
Quarter: 2010Q4

REPORT INFORMATION
  Report Type: 
  Country: None (occurrence: None)
  Receive Date: 20101005
  Receipt Date: 20100924
  Transmission Date: 20110411
  Serious: Yes (Hospitalization)
  Sender: FDA-Public Use
  Company Number: FR-BIOGENIDEC-2009BI027672

PATIENT
  Age: 34 Year
  Sex: Female
  Weight: 59 kg

DRUGS (2)
  1. TYSABRI [Suspect]
     Indication: MULTIPLE SCLEROSIS
     Route: 042
     Dates: start: 20080709
  2. CONTRACEPTION [Concomitant]

REACTIONS (1)
  - MALIGNANT MELANOMA [None]
